FAERS Safety Report 12693617 (Version 3)
Quarter: 2016Q3

REPORT INFORMATION
  Report Type: Report from Study
  Country: US (occurrence: US)
  Receive Date: 20160829
  Receipt Date: 20160909
  Transmission Date: 20161109
  Serious: Yes (Death)
  Sender: FDA-Public Use
  Company Number: US-ASTELLAS-2016US008423

PATIENT
  Age: 87 Year
  Sex: Male

DRUGS (18)
  1. DOXAZOSIN [Concomitant]
     Active Substance: DOXAZOSIN\DOXAZOSIN MESYLATE
     Indication: HYPERTENSION
     Dosage: 02 MG, ONCE DAILY
     Route: 048
  2. TORSEMIDE. [Concomitant]
     Active Substance: TORSEMIDE
     Indication: HYPERTENSION
     Route: 048
  3. LISINOPRIL. [Concomitant]
     Active Substance: LISINOPRIL
     Indication: HYPERTENSION
     Dosage: 05 MG, ONCE DAILY
     Route: 048
  4. PROCRIT [Concomitant]
     Active Substance: ERYTHROPOIETIN
     Indication: ANAEMIA
     Route: 065
  5. ROPINIROLE. [Concomitant]
     Active Substance: ROPINIROLE
     Indication: RESTLESS LEGS SYNDROME
     Dosage: 0.5 MG, ONCE DAILY
     Route: 048
  6. LACTULOSE. [Concomitant]
     Active Substance: LACTULOSE
     Indication: CONSTIPATION
     Route: 048
  7. LEVOTHYROXINE. [Concomitant]
     Active Substance: LEVOTHYROXINE
     Indication: HYPOTHYROIDISM
     Route: 048
  8. OMEPRAZOLE. [Concomitant]
     Active Substance: OMEPRAZOLE
     Indication: CHRONIC GASTRITIS
     Route: 048
  9. DOXAZOSIN [Concomitant]
     Active Substance: DOXAZOSIN\DOXAZOSIN MESYLATE
     Indication: URINARY RETENTION
  10. METOPROLOL. [Concomitant]
     Active Substance: METOPROLOL
     Indication: HYPERTENSION
     Route: 048
  11. VITAMIN B12 [Concomitant]
     Active Substance: CYANOCOBALAMIN
     Indication: VITAMIN B12 DEFICIENCY
     Dosage: UNK UNK, ONCE DAILY
     Route: 048
  12. MIRABEGRON [Suspect]
     Active Substance: MIRABEGRON
     Indication: HYPERTONIC BLADDER
     Route: 048
     Dates: start: 20160104, end: 20160301
  13. ELIQUIS [Concomitant]
     Active Substance: APIXABAN
     Indication: PROPHYLAXIS
     Route: 048
  14. TORSEMIDE. [Concomitant]
     Active Substance: TORSEMIDE
     Indication: RENAL DISORDER
  15. ASCORBIC ACID. [Concomitant]
     Active Substance: ASCORBIC ACID
     Indication: SUPPLEMENTATION THERAPY
     Route: 048
  16. FERROUS SULFATE. [Concomitant]
     Active Substance: FERROUS SULFATE
     Indication: ANAEMIA
     Route: 048
  17. TYLENOL [Concomitant]
     Active Substance: ACETAMINOPHEN
     Indication: PRODUCT USED FOR UNKNOWN INDICATION
     Route: 048
  18. VITAMIN D3 [Concomitant]
     Active Substance: CHOLECALCIFEROL
     Indication: SUPPLEMENTATION THERAPY
     Route: 048

REACTIONS (2)
  - Death [Fatal]
  - Urinary retention [Not Recovered/Not Resolved]

NARRATIVE: CASE EVENT DATE: 20160109
